FAERS Safety Report 14501678 (Version 3)
Quarter: 2018Q1

REPORT INFORMATION
  Report Type: Spontaneous
  Country: EG (occurrence: EG)
  Receive Date: 20180207
  Receipt Date: 20180219
  Transmission Date: 20180509
  Serious: Yes (Life-Threatening, Other)
  Sender: FDA-Public Use
  Company Number: EG-009507513-1802EGY001457

PATIENT
  Sex: Male
  Weight: 100 kg

DRUGS (5)
  1. ESMERON [Suspect]
     Active Substance: ROCURONIUM BROMIDE
     Indication: ENDOTRACHEAL INTUBATION
     Dosage: MAINTENANCE 0.1 MG/KG
  2. BRIDION [Suspect]
     Active Substance: SUGAMMADEX
     Dosage: REPORTED AS ^.2 MG PER KG^
  3. ESMERON [Suspect]
     Active Substance: ROCURONIUM BROMIDE
     Dosage: REPORTED AS ^.6 MG/KG^
  4. ESMERON [Suspect]
     Active Substance: ROCURONIUM BROMIDE
     Indication: INDUCTION OF ANAESTHESIA
     Dosage: INDUCED BY 0.6 MG/KG
  5. ESMERON [Suspect]
     Active Substance: ROCURONIUM BROMIDE
     Dosage: ADMINISTRATED A SINGLE DOSE NOT DOUBLE THE DOSE

REACTIONS (3)
  - Cardiac disorder [Recovered/Resolved]
  - Drug ineffective [Unknown]
  - Underdose [Unknown]
